FAERS Safety Report 5739052-5 (Version None)
Quarter: 2008Q2

REPORT INFORMATION
  Report Type: 
  Country: None (occurrence: None)
  Receive Date: 20080515
  Receipt Date: 20080515
  Transmission Date: 20081010
  Serious: Yes (Other)
  Sender: FDA-Public Use
  Company Number: A0728079A

PATIENT
  Age: 42 Year
  Sex: Female

DRUGS (1)
  1. NICORETTE [Suspect]
     Indication: SMOKING CESSATION THERAPY
     Dosage: 4MG UNKNOWN
     Route: 002
     Dates: start: 20080514, end: 20080514

REACTIONS (2)
  - HALLUCINATION [None]
  - INSOMNIA [None]
